FAERS Safety Report 14081224 (Version 1)
Quarter: 2017Q4

REPORT INFORMATION
  Report Type: Spontaneous
  Country: CZ (occurrence: CZ)
  Receive Date: 20171012
  Receipt Date: 20171012
  Transmission Date: 20180321
  Serious: Yes (Life-Threatening, Other)
  Sender: FDA-Public Use
  Company Number: CZ-MYLANLABS-2017M1062985

PATIENT
  Age: 37 Year
  Sex: Female
  Weight: 62 kg

DRUGS (11)
  1. AULIN [Concomitant]
     Active Substance: NIMESULIDE
     Dosage: UNK
  2. DEXONA [Concomitant]
     Active Substance: DEXAMETHASONE
     Dosage: UNK
  3. METOKLOPRAMID [Concomitant]
     Dosage: UNK
  4. DITHIADEN [Concomitant]
     Active Substance: BISULEPIN
     Dosage: UNK
  5. NEUROL [Concomitant]
     Dosage: 0-1-0
  6. RANITIDINE. [Concomitant]
     Active Substance: RANITIDINE
     Dosage: UNK
  7. KYTRIL [Concomitant]
     Active Substance: GRANISETRON HYDROCHLORIDE
     Dosage: UNK
  8. GRANISETRON [Concomitant]
     Active Substance: GRANISETRON
     Dosage: 1-0-1
  9. PACLITAXEL MYLAN 6 MG/ML [Suspect]
     Active Substance: PACLITAXEL
     Indication: OVARIAN CANCER
     Dosage: 300 MG, QW
     Route: 041
     Dates: start: 20170908, end: 20170908
  10. DEGAN [Concomitant]
     Active Substance: METOCLOPRAMIDE HYDROCHLORIDE
     Dosage: 1-1-1
  11. MIRTAZAPIN [Concomitant]
     Active Substance: MIRTAZAPINE
     Dosage: 0-0-1

REACTIONS (5)
  - Anxiety [Unknown]
  - Flushing [Unknown]
  - Pain [Unknown]
  - Dyspnoea [Unknown]
  - Hypersensitivity [Unknown]

NARRATIVE: CASE EVENT DATE: 20170908
